FAERS Safety Report 18284868 (Version 2)
Quarter: 2020Q3

REPORT INFORMATION
  Report Type: Report from Study
  Country: None (occurrence: FR)
  Receive Date: 20200918
  Receipt Date: 20200924
  Transmission Date: 20201103
  Serious: Yes (Other)
  Sender: FDA-Public Use
  Company Number: FR-ABBVIE-20K-056-3573489-00

PATIENT

DRUGS (1)
  1. IMBRUVICA [Suspect]
     Active Substance: IBRUTINIB
     Indication: CHRONIC LYMPHOCYTIC LEUKAEMIA
     Dosage: 140.00 MG
     Route: 048

REACTIONS (4)
  - Cardiotoxicity [Unknown]
  - Drug ineffective [Unknown]
  - Lymphocytosis [Unknown]
  - Chronic lymphocytic leukaemia [Unknown]
